FAERS Safety Report 17976288 (Version 1)
Quarter: 2020Q3

REPORT INFORMATION
  Report Type: Spontaneous
  Country: GR (occurrence: GR)
  Receive Date: 20200702
  Receipt Date: 20200702
  Transmission Date: 20201103
  Serious: Yes (Death, Hospitalization, Other)
  Sender: FDA-Public Use
  Company Number: GR-AMGEN-GRCSP2020104912

PATIENT
  Age: 68 Year
  Sex: Male

DRUGS (6)
  1. TOCILIZUMAB. [Suspect]
     Active Substance: TOCILIZUMAB
     Indication: PRODUCT USED FOR UNKNOWN INDICATION
     Dosage: UNK
     Route: 065
     Dates: start: 2019
  2. HYDROXYCHLOROQUINE [Concomitant]
     Active Substance: HYDROXYCHLOROQUINE
     Indication: ACUTE RESPIRATORY DISTRESS SYNDROME
     Dosage: UNK
     Dates: start: 2019
  3. ANAKINRA [Concomitant]
     Active Substance: ANAKINRA
     Dosage: 200 MILLIGRAM, TID
     Dates: start: 2019
  4. FILGRASTIM [Suspect]
     Active Substance: FILGRASTIM
     Indication: NEUTROPENIA
     Dosage: UNK
     Route: 065
     Dates: start: 2019
  5. MEROPENEM. [Concomitant]
     Active Substance: MEROPENEM
     Indication: ACUTE RESPIRATORY DISTRESS SYNDROME
     Dosage: UNK
     Dates: start: 2019
  6. AZITHROMYCIN ANHYDROUS. [Concomitant]
     Active Substance: AZITHROMYCIN ANHYDROUS
     Indication: ACUTE RESPIRATORY DISTRESS SYNDROME
     Dosage: UNK
     Dates: start: 2019

REACTIONS (9)
  - Acute myeloid leukaemia [Unknown]
  - PaO2/FiO2 ratio decreased [Unknown]
  - Systemic candida [Fatal]
  - Pseudomonal bacteraemia [Fatal]
  - General physical health deterioration [Unknown]
  - Thrombocytopenia [Not Recovered/Not Resolved]
  - Sepsis [Unknown]
  - Anaemia [Not Recovered/Not Resolved]
  - Off label use [Unknown]

NARRATIVE: CASE EVENT DATE: 2019
